FAERS Safety Report 23737478 (Version 2)
Quarter: 2024Q2

REPORT INFORMATION
  Report Type: Report from Study
  Country: US (occurrence: US)
  Receive Date: 20240412
  Receipt Date: 20240419
  Transmission Date: 20240715
  Serious: Yes (Hospitalization, Other)
  Sender: FDA-Public Use
  Company Number: US-SA-SAC20240411000235

PATIENT
  Age: 79 Year
  Sex: Female

DRUGS (1)
  1. DUPILUMAB [Suspect]
     Active Substance: DUPILUMAB
     Indication: Asthma
     Dosage: 300 MG, QOW
     Route: 058
     Dates: start: 20200220

REACTIONS (2)
  - Nephrolithiasis [Recovered/Resolved]
  - Tracheomalacia [Unknown]

NARRATIVE: CASE EVENT DATE: 20230901
